FAERS Safety Report 9809949 (Version 2)
Quarter: 2014Q1

REPORT INFORMATION
  Report Type: Spontaneous
  Country: US (occurrence: US)
  Receive Date: 20140110
  Receipt Date: 20140116
  Transmission Date: 20141002
  Serious: Yes (Hospitalization, Other)
  Sender: FDA-Public Use
  Company Number: US-GILEAD-2014-0091804

PATIENT
  Sex: Female

DRUGS (4)
  1. LETAIRIS [Suspect]
     Indication: PULMONARY HYPERTENSION
     Dosage: 5 MG, UNK
     Route: 065
     Dates: start: 20130912
  2. LETAIRIS [Suspect]
     Indication: PREMATURE BABY
  3. LETAIRIS [Suspect]
     Indication: LUNG DISORDER
  4. LETAIRIS [Suspect]
     Indication: ASPIRATION

REACTIONS (1)
  - Pneumonia [Unknown]
